FAERS Safety Report 5145542-9 (Version None)
Quarter: 2006Q4

REPORT INFORMATION
  Report Type: 
  Country: None (occurrence: None)
  Receive Date: 20061101
  Receipt Date: 20061023
  Transmission Date: 20070319
  Serious: Yes (Death, Hospitalization, Other)
  Sender: FDA-Public Use
  Company Number: 163-21880-06101196

PATIENT
  Age: 88 Year
  Sex: Female

DRUGS (10)
  1. REVLIMID [Suspect]
     Indication: MYELODYSPLASTIC SYNDROME
     Dosage: 10 MG, 1 IN 1 D, ORAL
     Route: 048
     Dates: start: 20060425, end: 20060522
  2. DIGOXIN [Concomitant]
  3. PROCANBID [Concomitant]
  4. DARVOCET [Concomitant]
  5. ISOSORBIDE [Concomitant]
  6. NORVASC [Concomitant]
  7. DIOVAN [Concomitant]
  8. ALBUTEROL [Concomitant]
  9. VITAMIN CAP [Concomitant]
  10. VITAMIN B12 (CYANOCOBALAMIN) (TABLETS) [Concomitant]

REACTIONS (4)
  - CARDIO-RESPIRATORY ARREST [None]
  - DIARRHOEA [None]
  - ESCHERICHIA SEPSIS [None]
  - PANCYTOPENIA [None]
